FAERS Safety Report 5365138-3 (Version None)
Quarter: 2007Q2

REPORT INFORMATION
  Report Type: 
  Country: None (occurrence: None)
  Receive Date: 20070621
  Receipt Date: 20070612
  Transmission Date: 20071010
  Serious: Yes (Other)
  Sender: FDA-Public Use
  Company Number: GB-BRISTOL-MYERS SQUIBB COMPANY-13820634

PATIENT

DRUGS (1)
  1. CYCLOPHOSPHAMIDE [Suspect]

REACTIONS (1)
  - SUPRAVENTRICULAR TACHYCARDIA [None]
